FAERS Safety Report 4698017-5 (Version None)
Quarter: 2005Q2

REPORT INFORMATION
  Report Type: 
  Country: None (occurrence: None)
  Receive Date: 20050623
  Receipt Date: 20050613
  Transmission Date: 20051028
  Serious: Yes (Other)
  Sender: FDA-Public Use
  Company Number: GB-BRISTOL-MYERS SQUIBB COMPANY-13002589

PATIENT
  Age: 82 Year
  Sex: Male

DRUGS (5)
  1. METFORMIN HCL [Suspect]
  2. AVANDIA [Suspect]
     Indication: DIABETES MELLITUS
     Dosage: DOSE: 4-8 MG DAILY
     Route: 048
     Dates: start: 20040805, end: 20050112
  3. BISOPROLOL FUMARATE [Concomitant]
     Indication: PAIN
     Route: 048
     Dates: start: 19990101
  4. AMLODIPINE [Concomitant]
     Indication: BLOOD PRESSURE INCREASED
     Route: 048
     Dates: start: 20000101
  5. GLICLAZIDE [Concomitant]
     Indication: DIABETES MELLITUS
     Route: 048
     Dates: start: 20000101

REACTIONS (1)
  - OEDEMA PERIPHERAL [None]
